FAERS Safety Report 13028705 (Version 1)
Quarter: 2016Q4

REPORT INFORMATION
  Report Type: Other
  Country: US (occurrence: US)
  Receive Date: 20161214
  Receipt Date: 20161214
  Transmission Date: 20170207
  Serious: Yes (Other)
  Sender: FDA-Public Use
  Company Number: US-ALSI-201600365

PATIENT
  Age: 70 Year
  Sex: Male

DRUGS (2)
  1. CLOPIDOGREL [Concomitant]
     Active Substance: CLOPIDOGREL BISULFATE
  2. OXYGEN. [Suspect]
     Active Substance: OXYGEN
     Indication: RETINAL ARTERY OCCLUSION

REACTIONS (4)
  - Off label use [None]
  - Retinal neovascularisation [None]
  - Glaucoma [None]
  - Therapeutic response unexpected [None]
